FAERS Safety Report 9394329 (Version 1)
Quarter: 2013Q3

REPORT INFORMATION
  Report Type: Report from Study
  Country: FR (occurrence: FR)
  Receive Date: 20130711
  Receipt Date: 20130711
  Transmission Date: 20140515
  Serious: Yes (Hospitalization)
  Sender: FDA-Public Use
  Company Number: FR-ROCHE-1245427

PATIENT
  Sex: Female
  Weight: 54 kg

DRUGS (12)
  1. TOCILIZUMAB [Suspect]
     Indication: RHEUMATOID ARTHRITIS
     Route: 041
     Dates: start: 20110208, end: 20121221
  2. CORTANCYL [Concomitant]
     Dosage: DAILY
     Route: 065
  3. CORTANCYL [Concomitant]
     Route: 065
  4. CORTANCYL [Concomitant]
     Dosage: DAILY
     Route: 065
  5. ARAVA [Concomitant]
     Dosage: DAILY
     Route: 065
  6. ADALIMUMAB [Concomitant]
     Route: 065
     Dates: start: 20030915, end: 20101221
  7. ETANERCEPT [Concomitant]
  8. SOLUPRED (FRANCE) [Concomitant]
  9. METHOTREXATE [Concomitant]
     Route: 065
  10. DOLIPRANE [Concomitant]
  11. CONTRAMAL LP [Concomitant]
     Route: 065
  12. PAROXETINE [Concomitant]
     Dosage: DAILY
     Route: 065

REACTIONS (9)
  - Arthropathy [Recovered/Resolved]
  - Folliculitis [Recovered/Resolved]
  - Diarrhoea [Recovered/Resolved]
  - Laryngitis [Recovered/Resolved]
  - Oral herpes [Unknown]
  - Gastroenteritis [Recovered/Resolved]
  - Paronychia [Recovered/Resolved]
  - Weight increased [Not Recovered/Not Resolved]
  - Hypercholesterolaemia [Not Recovered/Not Resolved]
